FAERS Safety Report 14858251 (Version 1)
Quarter: 2018Q2

REPORT INFORMATION
  Report Type: Spontaneous
  Country: IT (occurrence: IT)
  Receive Date: 20180508
  Receipt Date: 20180508
  Transmission Date: 20180711
  Serious: Yes (Other)
  Sender: FDA-Public Use
  Company Number: IT-HORIZON-PRE-0180-2018

PATIENT
  Age: 69 Year
  Sex: Female

DRUGS (3)
  1. FEMARA [Concomitant]
     Active Substance: LETROZOLE
     Indication: BREAST CANCER
     Dosage: 1 DF
     Route: 048
     Dates: start: 20180319, end: 20180408
  2. PREDNISONE. [Suspect]
     Active Substance: PREDNISONE
     Indication: PRODUCT USED FOR UNKNOWN INDICATION
     Dosage: 25 MG DAILY
     Route: 048
  3. RIBOCICLIB. [Suspect]
     Active Substance: RIBOCICLIB
     Indication: BREAST CANCER
     Dosage: 600 MG IN CYCLE
     Route: 048
     Dates: start: 20180319, end: 20180408

REACTIONS (2)
  - Aspartate aminotransferase [Unknown]
  - Alanine aminotransferase [Unknown]

NARRATIVE: CASE EVENT DATE: 20180418
